FAERS Safety Report 7521445-7 (Version None)
Quarter: 2011Q2

REPORT INFORMATION
  Report Type: 
  Country: None (occurrence: None)
  Receive Date: 20110603
  Receipt Date: 20110106
  Transmission Date: 20111010
  Serious: Yes (Hospitalization, Other)
  Sender: FDA-Public Use
  Company Number: CA-BAYER-2010-000315

PATIENT
  Age: 50 Year

DRUGS (2)
  1. TRANEXAMIC ACID [Concomitant]
  2. MIRENA [Suspect]
     Dosage: UNK
     Dates: start: 20091113, end: 20100921

REACTIONS (3)
  - UTERINE LEIOMYOMA [None]
  - VAGINAL HAEMORRHAGE [None]
  - PRODUCT SHAPE ISSUE [None]
